FAERS Safety Report 25364450 (Version 2)
Quarter: 2025Q2

REPORT INFORMATION
  Report Type: Spontaneous
  Country: IN (occurrence: IN)
  Receive Date: 20250527
  Receipt Date: 20250616
  Transmission Date: 20250717
  Serious: Yes (Death, Other)
  Sender: PFIZER
  Company Number: IN-PFIZER INC-PV202200029871

PATIENT
  Age: 70 Year
  Sex: Male
  Weight: 71.9 kg

DRUGS (11)
  1. DACOMITINIB [Suspect]
     Active Substance: DACOMITINIB
     Dosage: 45 MG, 1X/DAY
     Route: 048
     Dates: start: 20220604
  2. DACOMITINIB [Suspect]
     Active Substance: DACOMITINIB
     Dosage: 30 MG, 1X/DAY
     Route: 048
  3. LYMECYCLINE [Concomitant]
     Active Substance: LYMECYCLINE
     Dosage: 408 MG, 1X/DAY
  4. LOPERAMIDE [Concomitant]
     Active Substance: LOPERAMIDE
     Indication: Diarrhoea
  5. ALPRAZOLAM [Concomitant]
     Active Substance: ALPRAZOLAM
     Dosage: 0.5 MG, 1X/DAY AT BEDTIME
  6. ULTRACET [Concomitant]
     Active Substance: ACETAMINOPHEN\TRAMADOL HYDROCHLORIDE
     Dosage: 1 DF, 2X/DAY
  7. PREGABALIN [Concomitant]
     Active Substance: PREGABALIN
     Dosage: 75 MG, 1X/DAY AT NIGHT
  8. RANITIDINE HYDROCHLORIDE [Concomitant]
     Active Substance: RANITIDINE HYDROCHLORIDE
  9. MUCAINE [ALUMINIUM HYDROXIDE GEL;MAGNESIUM HYDROXIDE;OXETACAINE] [Concomitant]
  10. ERYTOP [CLINDAMYCIN PHOSPHATE] [Concomitant]
  11. SODA BICARB [Concomitant]
     Dosage: UNK, 3X/DAY

REACTIONS (14)
  - Cardiopulmonary failure [Fatal]
  - Lung adenocarcinoma stage IV [Unknown]
  - Malignant neoplasm progression [Unknown]
  - Blood pressure increased [Not Recovered/Not Resolved]
  - Heart rate increased [Unknown]
  - Hiccups [Unknown]
  - Rash [Not Recovered/Not Resolved]
  - Stomatitis [Unknown]
  - Body temperature decreased [Unknown]
  - Diarrhoea [Unknown]
  - Hepatic cyst [Unknown]
  - Osteosclerosis [Unknown]
  - Umbilical hernia [Unknown]
  - Bladder dilatation [Unknown]

NARRATIVE: CASE EVENT DATE: 20220620
